FAERS Safety Report 22879358 (Version 4)
Quarter: 2023Q4

REPORT INFORMATION
  Report Type: Spontaneous
  Country: DE (occurrence: DE)
  Receive Date: 20230829
  Receipt Date: 20231129
  Transmission Date: 20240110
  Serious: Yes (Other)
  Sender: FDA-Public Use
  Company Number: DE-BRISTOL-MYERS SQUIBB COMPANY-2023-120480

PATIENT
  Age: 55 Year

DRUGS (4)
  1. NIVOLUMAB [Suspect]
     Active Substance: NIVOLUMAB
     Indication: Renal cell carcinoma
     Dates: start: 20230131
  2. CABOMETYX [Suspect]
     Active Substance: CABOZANTINIB S-MALATE
     Indication: Renal cell carcinoma
     Dates: start: 20230131
  3. CABOMETYX [Suspect]
     Active Substance: CABOZANTINIB S-MALATE
     Dates: start: 20230424
  4. RITUXIMAB [Concomitant]
     Active Substance: RITUXIMAB
     Indication: Renal cell carcinoma
     Dates: start: 2023

REACTIONS (5)
  - Granulomatosis with polyangiitis [Unknown]
  - Malignant neoplasm progression [Unknown]
  - Pericardial effusion [Unknown]
  - Pleural effusion [Unknown]
  - Renal cell carcinoma recurrent [Unknown]

NARRATIVE: CASE EVENT DATE: 20230301
